FAERS Safety Report 12386835 (Version 2)
Quarter: 2016Q2

REPORT INFORMATION
  Report Type: Report from Study
  Country: US (occurrence: US)
  Receive Date: 20160519
  Receipt Date: 20160531
  Transmission Date: 20160815
  Serious: Yes (Other)
  Sender: FDA-Public Use
  Company Number: US-MDT-ADR-2016-00353

PATIENT
  Age: 44 Year
  Sex: Female

DRUGS (4)
  1. BACLOFEN. [Suspect]
     Active Substance: BACLOFEN
     Dosage: 630.7 MCG/DAY
     Route: 037
  2. SUFENTA [Suspect]
     Active Substance: SUFENTANIL CITRATE
     Dosage: 180.03 MCG/DAY
     Route: 037
  3. BUPIVACAINE. [Suspect]
     Active Substance: BUPIVACAINE
     Dosage: 12.468 MG/DAY
     Route: 037
  4. CLONIDINE. [Suspect]
     Active Substance: CLONIDINE
     Dosage: 817.4 MCG/DAY
     Route: 037

REACTIONS (1)
  - Pain in extremity [Recovered/Resolved with Sequelae]
